FAERS Safety Report 8027060-3 (Version None)
Quarter: 2011Q4

REPORT INFORMATION
  Report Type: 
  Country: None (occurrence: None)
  Receive Date: 20111130
  Receipt Date: 20110817
  Transmission Date: 20120403
  Serious: Yes (Hospitalization, Other)
  Sender: FDA-Public Use
  Company Number: US201104002756

PATIENT
  Age: 54 Year
  Sex: Female
  Weight: 101.1 kg

DRUGS (11)
  1. PERCOCET [Concomitant]
  2. TRIGLIDE [Concomitant]
  3. METAMUCIL (PLANTAGO OVATA) [Concomitant]
  4. METOFMRIN (METFORMIN) [Concomitant]
  5. CALCIUM CITRATE [Concomitant]
  6. ACIPHEX [Concomitant]
  7. BYETTA [Suspect]
     Dosage: 5 UG, BID ;  10 UG, BID
     Dates: start: 20050701
  8. HUMULIN /PRI/ (INSULIN HUMAN) [Concomitant]
  9. LISINOPRIL [Concomitant]
  10. OXYCONTIN [Concomitant]
  11. PRAVACHOL [Concomitant]

REACTIONS (4)
  - DIARRHOEA [None]
  - WEIGHT DECREASED [None]
  - OFF LABEL USE [None]
  - PANCREATITIS ACUTE [None]
